FAERS Safety Report 8416103-0 (Version None)
Quarter: 2012Q2

REPORT INFORMATION
  Report Type: 
  Country: None (occurrence: None)
  Receive Date: 20120606
  Receipt Date: 20120604
  Transmission Date: 20120825
  Serious: Yes (Hospitalization, Other)
  Sender: FDA-Public Use
  Company Number: US-B.I. PHARMACEUTICALS,INC./RIDGEFIELD-2012-BP-12973BP

PATIENT
  Sex: Female

DRUGS (18)
  1. METFORMIN HCL [Concomitant]
  2. TRAZODONE HCL [Concomitant]
  3. LISINOPRIL [Concomitant]
  4. OXYCODONE HYDROCHLORIDE [Concomitant]
  5. METAMUCIL-2 [Concomitant]
  6. MUCINEX [Concomitant]
  7. CITALOPRAM HYDROBROMIDE [Concomitant]
  8. ADVAIR DISKUS 100/50 [Concomitant]
  9. VENTOLIN [Concomitant]
  10. VITAMIN D [Concomitant]
  11. GLIPIZIDE [Concomitant]
  12. CHANTIX [Concomitant]
  13. AMLODIPINE [Concomitant]
  14. LOVASTATIN [Concomitant]
  15. ASPIRIN [Concomitant]
  16. CALCIUM CARBONATE [Concomitant]
  17. LETROZOLE [Concomitant]
  18. SPIRIVA [Suspect]
     Indication: CHRONIC OBSTRUCTIVE PULMONARY DISEASE
     Dosage: 18 MCG
     Route: 055

REACTIONS (2)
  - BREAST CANCER [None]
  - LUNG NEOPLASM [None]
